FAERS Safety Report 13369340 (Version 1)
Quarter: 2017Q1

REPORT INFORMATION
  Report Type: Spontaneous
  Country: FI (occurrence: FI)
  Receive Date: 20170324
  Receipt Date: 20170324
  Transmission Date: 20170429
  Serious: Yes (Hospitalization)
  Sender: FDA-Public Use
  Company Number: FI-GLAXOSMITHKLINE-FI2017GSK038754

PATIENT
  Age: 77 Year
  Sex: Male

DRUGS (11)
  1. NITROSID [Concomitant]
     Indication: CORONARY ARTERY DISEASE
     Dosage: 20 MG, TID
     Route: 048
     Dates: start: 200607
  2. PLAVIX [Concomitant]
     Active Substance: CLOPIDOGREL BISULFATE
     Indication: PROMOTION OF PERIPHERAL CIRCULATION
     Dosage: 75 MG, 1D
     Route: 048
     Dates: start: 200809
  3. RENITEC [Concomitant]
     Active Substance: ENALAPRIL MALEATE
     Indication: BLOOD PRESSURE MEASUREMENT
     Dosage: 10 MG, 1D
     Route: 048
     Dates: start: 200805
  4. EMCONCOR [Concomitant]
     Active Substance: BISOPROLOL FUMARATE
     Indication: BLOOD PRESSURE MEASUREMENT
     Dosage: 5 MG, BID
     Route: 048
     Dates: start: 201211
  5. FURESIS [Concomitant]
     Active Substance: FUROSEMIDE
     Indication: SWELLING
     Dosage: 20 MG, TID
     Route: 048
     Dates: start: 201207
  6. THYROXIN [Concomitant]
     Active Substance: LEVOTHYROXINE
     Indication: HYPOTHYROIDISM
     Dosage: 100 ?G, 1D
     Dates: start: 200802
  7. VENTOLINE [Suspect]
     Active Substance: ALBUTEROL
     Indication: COUGH
     Dosage: 5-10ML THREE OR FOUR TIMES A DAY
     Route: 048
     Dates: start: 20170302, end: 20170302
  8. ROSUVASTATIN. [Concomitant]
     Active Substance: ROSUVASTATIN
     Indication: BLOOD CHOLESTEROL INCREASED
     Dosage: 5 MG, 1D
     Route: 048
     Dates: start: 201703
  9. PRIMASPAN [Concomitant]
     Active Substance: ASPIRIN
     Indication: CORONARY ARTERY DISEASE
     Dosage: 100 MG, 1D
     Route: 048
     Dates: start: 201411
  10. OPAMOX [Concomitant]
     Active Substance: OXAZEPAM
     Indication: INSOMNIA
     Dosage: 15 MG, 1D
     Dates: start: 201409
  11. DECUBAL [Concomitant]
     Indication: SKIN DISORDER
     Dosage: UNK
     Dates: start: 201410

REACTIONS (1)
  - Chest pain [Recovering/Resolving]

NARRATIVE: CASE EVENT DATE: 20170302
